FAERS Safety Report 18509473 (Version 5)
Quarter: 2021Q1

REPORT INFORMATION
  Report Type: Spontaneous
  Country: US (occurrence: US)
  Receive Date: 20201117
  Receipt Date: 20210311
  Transmission Date: 20210419
  Serious: Yes (Hospitalization, Other)
  Sender: FDA-Public Use
  Company Number: US-CLOVIS ONCOLOGY-CLO-2020-002129

PATIENT
  Sex: Male

DRUGS (4)
  1. RUBRACA [Suspect]
     Active Substance: RUCAPARIB CAMSYLATE
     Dosage: 400 MILLIGRAM, BID
     Route: 048
     Dates: start: 20201017
  2. RUBRACA [Suspect]
     Active Substance: RUCAPARIB CAMSYLATE
     Dosage: 300 MG, BID
     Route: 048
     Dates: start: 20201017
  3. RUBRACA [Suspect]
     Active Substance: RUCAPARIB CAMSYLATE
     Indication: PROSTATE CANCER
     Dosage: 600 MG, BID
  4. RUBRACA [Suspect]
     Active Substance: RUCAPARIB CAMSYLATE
     Dosage: 400 MILLIGRAM, BID
     Route: 048
     Dates: start: 20201017

REACTIONS (14)
  - Atrial fibrillation [Not Recovered/Not Resolved]
  - Blood pressure decreased [Unknown]
  - Blood potassium abnormal [Unknown]
  - Oral surgery [Unknown]
  - Head injury [Unknown]
  - Blood count abnormal [Unknown]
  - Lip swelling [Unknown]
  - Fall [Unknown]
  - Vaccination complication [Unknown]
  - Product packaging quantity issue [Unknown]
  - Haemoglobin decreased [Not Recovered/Not Resolved]
  - Muscular weakness [Unknown]
  - Platelet count decreased [Unknown]
  - Lip pain [Unknown]

NARRATIVE: CASE EVENT DATE: 2020
